FAERS Safety Report 5306080-3 (Version None)
Quarter: 2007Q2

REPORT INFORMATION
  Report Type: 
  Country: None (occurrence: None)
  Receive Date: 20070424
  Receipt Date: 20060405
  Transmission Date: 20071010
  Serious: Yes (Life-Threatening, Hospitalization)
  Sender: FDA-Public Use
  Company Number: US-BRISTOL-MYERS SQUIBB COMPANY-13243035

PATIENT
  Age: 57 Year
  Sex: Female
  Weight: 99 kg

DRUGS (7)
  1. PARAPLATIN [Suspect]
     Indication: UTERINE CANCER
     Route: 042
     Dates: start: 20060104, end: 20060104
  2. ALOXI [Concomitant]
     Indication: PREMEDICATION
     Route: 042
     Dates: start: 20060104, end: 20060104
  3. DECADRON [Concomitant]
     Indication: PREMEDICATION
     Route: 042
     Dates: start: 20060104, end: 20060104
  4. TAXOL [Concomitant]
     Route: 042
  5. PROCRIT [Concomitant]
     Route: 058
  6. BENADRYL [Concomitant]
     Route: 042
  7. TAGAMET [Concomitant]
     Route: 042

REACTIONS (4)
  - CHEST DISCOMFORT [None]
  - FLUSHING [None]
  - INCONTINENCE [None]
  - VOMITING [None]
